FAERS Safety Report 21022800 (Version 2)
Quarter: 2022Q3

REPORT INFORMATION
  Report Type: Spontaneous
  Country: US (occurrence: US)
  Receive Date: 20220629
  Receipt Date: 20220803
  Transmission Date: 20221027
  Serious: No
  Sender: FDA-Public Use
  Company Number: US-PFIZER INC-202200902845

PATIENT
  Age: 65 Year
  Sex: Male
  Weight: 81.633 kg

DRUGS (5)
  1. PAXLOVID [Suspect]
     Active Substance: NIRMATRELVIR\RITONAVIR
     Indication: COVID-19 treatment
     Dosage: UNK
     Dates: start: 20220616, end: 20220620
  2. CELLCEPT [Concomitant]
     Active Substance: MYCOPHENOLATE MOFETIL
     Indication: Sarcoidosis
     Dosage: 750 MG, 2X/DAY
     Dates: start: 201806, end: 20220616
  3. CELLCEPT [Concomitant]
     Active Substance: MYCOPHENOLATE MOFETIL
     Dosage: 750 MG, 2X/DAY
     Dates: start: 20220709
  4. HUMIRA [Concomitant]
     Active Substance: ADALIMUMAB
     Indication: Cardiac disorder
     Dosage: 40 MG (Q 2 WEEKS)
     Route: 058
     Dates: start: 201908, end: 20220616
  5. HUMIRA [Concomitant]
     Active Substance: ADALIMUMAB
     Dosage: 40 MG (Q 2 WEEKS)
     Route: 058
     Dates: start: 20220710

REACTIONS (2)
  - COVID-19 [Recovered/Resolved]
  - Disease recurrence [Recovered/Resolved]

NARRATIVE: CASE EVENT DATE: 20220627
